FAERS Safety Report 11171011 (Version 1)
Quarter: 2015Q2

REPORT INFORMATION
  Report Type: Spontaneous
  Country: US (occurrence: None)
  Receive Date: 20150605
  Receipt Date: 20150605
  Transmission Date: 20150821
  Serious: Yes (Hospitalization, Disabling)
  Sender: FDA-Public Use
  Company Number: None

PATIENT
  Age: 84 Year
  Sex: Female
  Weight: 57.15 kg

DRUGS (9)
  1. MIRALAX [Suspect]
     Active Substance: POLYETHYLENE GLYCOL 3350
     Indication: FAECALOMA
     Dosage: TAKE EVERY DAY, ONCE DAILY, TAKEN BY MOUTH
     Route: 048
     Dates: start: 20140101, end: 20140228
  2. DIGOXIN. [Concomitant]
     Active Substance: DIGOXIN
  3. MIRALAX [Suspect]
     Active Substance: POLYETHYLENE GLYCOL 3350
     Indication: CONSTIPATION
     Dosage: TAKE EVERY DAY, ONCE DAILY, TAKEN BY MOUTH
     Route: 048
     Dates: start: 20140101, end: 20140228
  4. COUMEDIN [Concomitant]
  5. DULCOLAX [Concomitant]
     Active Substance: BISACODYL OR DOCUSATE SODIUM
  6. BUMETANIDE. [Concomitant]
     Active Substance: BUMETANIDE
  7. LEVOTHYROXINE [Concomitant]
     Active Substance: LEVOTHYROXINE
  8. SPIRONALACTONE [Concomitant]
     Active Substance: SPIRONOLACTONE
  9. DOFETILIDE [Concomitant]
     Active Substance: DOFETILIDE

REACTIONS (2)
  - Abdominal pain upper [None]
  - Cholelithiasis [None]

NARRATIVE: CASE EVENT DATE: 20150105
